FAERS Safety Report 8235169-4 (Version None)
Quarter: 2012Q1

REPORT INFORMATION
  Report Type: 
  Country: None (occurrence: None)
  Receive Date: 20120326
  Receipt Date: 20120312
  Transmission Date: 20120608
  Serious: Yes (Hospitalization)
  Sender: FDA-Public Use
  Company Number: BE-ROCHE-1017830

PATIENT
  Age: 47 Year
  Sex: Male
  Weight: 82 kg

DRUGS (10)
  1. VEMURAFENIB [Suspect]
     Indication: METASTATIC MALIGNANT MELANOMA
     Dosage: DATE OF LAST DOSE PRIOR TO SAE: 30 NOV 2011
     Route: 048
     Dates: start: 20110824, end: 20111201
  2. VEMURAFENIB [Suspect]
     Route: 048
     Dates: start: 20111207, end: 20120102
  3. LORAMET [Concomitant]
     Dates: start: 20111114
  4. ASCORBIC ACID [Concomitant]
     Dates: start: 20111019
  5. OMEPRAZOLE [Concomitant]
     Dates: start: 20120102
  6. SOLU-MEDROL [Concomitant]
  7. DEANXIT [Concomitant]
     Dates: start: 20110824
  8. VEMURAFENIB [Suspect]
     Route: 048
     Dates: start: 20120120, end: 20120210
  9. AUGMENTIN '125' [Concomitant]
     Dates: start: 20111204, end: 20111205
  10. FOLIC ACID [Concomitant]
     Dates: start: 20110824

REACTIONS (2)
  - MONOPARESIS [None]
  - CEREBRAL HAEMORRHAGE [None]
